FAERS Safety Report 8295398-0 (Version None)
Quarter: 2012Q2

REPORT INFORMATION
  Report Type: 
  Country: None (occurrence: None)
  Receive Date: 20120418
  Receipt Date: 20120410
  Transmission Date: 20120825
  Serious: Yes (Other)
  Sender: FDA-Public Use
  Company Number: US-ROCHE-1060124

PATIENT
  Sex: Male

DRUGS (5)
  1. XOLAIR [Suspect]
     Indication: ASTHMA
     Route: 058
     Dates: start: 20120313
  2. UNIPHYL [Concomitant]
  3. SINGULAIR [Concomitant]
  4. SYMBICORT [Concomitant]
  5. SPIRIVA [Concomitant]

REACTIONS (1)
  - ASTHMA [None]
